FAERS Safety Report 4361309-3 (Version None)
Quarter: 2004Q2

REPORT INFORMATION
  Report Type: 
  Country: None (occurrence: None)
  Receive Date: 20040520
  Receipt Date: 20040429
  Transmission Date: 20050107
  Serious: Yes (Hospitalization, Other)
  Sender: FDA-Public Use
  Company Number: PHEH2004US04754

PATIENT
  Age: 32 Year
  Sex: Female
  Weight: 132 kg

DRUGS (7)
  1. ZELNORM [Suspect]
     Indication: IRRITABLE BOWEL SYNDROME
     Dosage: 6 MG, BID
     Dates: start: 20031024, end: 20040416
  2. WELLBUTRIN [Concomitant]
     Dosage: 150 MG, UNK
  3. PAXIL [Concomitant]
     Dosage: 30 MG, UNK
  4. VALIUM [Concomitant]
  5. ANTIVERT ^PFIZER^ [Concomitant]
     Dosage: UNK, PRN
  6. LEVSIN PB [Concomitant]
     Dosage: UNK, PRN
  7. XANAX [Concomitant]
     Dosage: UNK, PRN

REACTIONS (19)
  - ABDOMINAL DISCOMFORT [None]
  - ABDOMINAL PAIN LOWER [None]
  - ABDOMINAL TENDERNESS [None]
  - BIOPSY COLON ABNORMAL [None]
  - CHILLS [None]
  - COLITIS ISCHAEMIC [None]
  - COLONOSCOPY ABNORMAL [None]
  - COMPUTERISED TOMOGRAM ABNORMAL [None]
  - DEHYDRATION [None]
  - DIARRHOEA [None]
  - ENTEROCOLITIS INFECTIOUS [None]
  - INFREQUENT BOWEL MOVEMENTS [None]
  - NAUSEA [None]
  - POLYPECTOMY [None]
  - PROTEIN S DECREASED [None]
  - PYREXIA [None]
  - RECTAL POLYP [None]
  - STOOL ANALYSIS ABNORMAL [None]
  - URINE ANALYSIS ABNORMAL [None]
